FAERS Safety Report 19429834 (Version 30)
Quarter: 2025Q2

REPORT INFORMATION
  Report Type: Spontaneous
  Country: GB (occurrence: GB)
  Receive Date: 20210617
  Receipt Date: 20250613
  Transmission Date: 20250716
  Serious: Yes (Other)
  Sender: Haleon PLC
  Company Number: GB-EMA-DD-20181127-N9C8J7-154206

PATIENT
  Age: 29 Year
  Sex: Male

DRUGS (295)
  1. DICLOFENAC SODIUM [Suspect]
     Active Substance: DICLOFENAC SODIUM
     Indication: Product used for unknown indication
  2. DICLOFENAC SODIUM [Suspect]
     Active Substance: DICLOFENAC SODIUM
  3. DICLOFENAC SODIUM [Suspect]
     Active Substance: DICLOFENAC SODIUM
  4. DICLOFENAC SODIUM [Suspect]
     Active Substance: DICLOFENAC SODIUM
  5. VALPROATE [Suspect]
     Active Substance: VALPROIC ACID
     Indication: Product used for unknown indication
     Dosage: UNK, QD (FORMULATION: ENDOTRACHEOPULMONARY INSTILLATION)  EVERY 1 DAYS
     Route: 030
  6. VALPROATE [Suspect]
     Active Substance: VALPROIC ACID
     Dosage: UNK, QD (EVERY 1 DAYS)
     Route: 030
  7. VALPROATE [Suspect]
     Active Substance: VALPROIC ACID
  8. VALPROATE [Suspect]
     Active Substance: VALPROIC ACID
     Dosage: UNK, QD (FORMULATION: ENDOTRACHEOPULMONARY INSTILLATION) EVERY 1 DAYS
  9. VALPROATE [Suspect]
     Active Substance: VALPROIC ACID
  10. VALPROATE [Suspect]
     Active Substance: VALPROIC ACID
  11. VALPROATE [Suspect]
     Active Substance: VALPROIC ACID
  12. VALPROATE [Suspect]
     Active Substance: VALPROIC ACID
  13. VALPROATE [Suspect]
     Active Substance: VALPROIC ACID
     Route: 030
  14. VALPROATE [Suspect]
     Active Substance: VALPROIC ACID
  15. BOTOX [Suspect]
     Active Substance: ONABOTULINUMTOXINA
     Indication: Product used for unknown indication
     Route: 030
  16. BOTOX [Suspect]
     Active Substance: ONABOTULINUMTOXINA
     Dosage: PRODUCT START AND STOP DATE WAS REPORTED AS 2017
     Route: 030
  17. BOTOX [Suspect]
     Active Substance: ONABOTULINUMTOXINA
  18. BOTOX [Suspect]
     Active Substance: ONABOTULINUMTOXINA
     Route: 030
  19. BOTOX [Suspect]
     Active Substance: ONABOTULINUMTOXINA
     Route: 030
  20. BOTOX [Suspect]
     Active Substance: ONABOTULINUMTOXINA
     Route: 030
  21. BOTOX [Suspect]
     Active Substance: ONABOTULINUMTOXINA
     Dosage: UNK UNK, SINGLE PRODUCT START AND STOP DATE WAS REPORTED AS 2018
     Route: 030
  22. BOTOX [Suspect]
     Active Substance: ONABOTULINUMTOXINA
     Route: 030
  23. BOTOX [Suspect]
     Active Substance: ONABOTULINUMTOXINA
     Route: 030
  24. BOTOX [Suspect]
     Active Substance: ONABOTULINUMTOXINA
  25. BOTOX [Suspect]
     Active Substance: ONABOTULINUMTOXINA
     Route: 030
  26. BOTOX [Suspect]
     Active Substance: ONABOTULINUMTOXINA
  27. BOTOX [Suspect]
     Active Substance: ONABOTULINUMTOXINA
  28. BOTOX [Suspect]
     Active Substance: ONABOTULINUMTOXINA
     Route: 030
  29. BOTOX [Suspect]
     Active Substance: ONABOTULINUMTOXINA
  30. TOPAMAX [Suspect]
     Active Substance: TOPIRAMATE
     Indication: Product used for unknown indication
     Route: 048
  31. TOPAMAX [Suspect]
     Active Substance: TOPIRAMATE
  32. TOPAMAX [Suspect]
     Active Substance: TOPIRAMATE
  33. TOPAMAX [Suspect]
     Active Substance: TOPIRAMATE
  34. TOPAMAX [Suspect]
     Active Substance: TOPIRAMATE
  35. TOPAMAX [Suspect]
     Active Substance: TOPIRAMATE
  36. SERTRALINE [Suspect]
     Active Substance: SERTRALINE HYDROCHLORIDE
     Indication: Product used for unknown indication
  37. SERTRALINE [Suspect]
     Active Substance: SERTRALINE HYDROCHLORIDE
  38. SERTRALINE [Suspect]
     Active Substance: SERTRALINE HYDROCHLORIDE
  39. SERTRALINE [Suspect]
     Active Substance: SERTRALINE HYDROCHLORIDE
  40. DOSULEPIN HYDROCHLORIDE [Suspect]
     Active Substance: DOTHIEPIN HYDROCHLORIDE
     Indication: Product used for unknown indication
     Route: 048
  41. DOSULEPIN HYDROCHLORIDE [Suspect]
     Active Substance: DOTHIEPIN HYDROCHLORIDE
     Indication: Product used for unknown indication
  42. DOSULEPIN HYDROCHLORIDE [Suspect]
     Active Substance: DOTHIEPIN HYDROCHLORIDE
  43. DOSULEPIN HYDROCHLORIDE [Suspect]
     Active Substance: DOTHIEPIN HYDROCHLORIDE
  44. DOSULEPIN HYDROCHLORIDE [Suspect]
     Active Substance: DOTHIEPIN HYDROCHLORIDE
  45. DOSULEPIN HYDROCHLORIDE [Suspect]
     Active Substance: DOTHIEPIN HYDROCHLORIDE
  46. DOSULEPIN HYDROCHLORIDE [Suspect]
     Active Substance: DOTHIEPIN HYDROCHLORIDE
  47. DOSULEPIN HYDROCHLORIDE [Suspect]
     Active Substance: DOTHIEPIN HYDROCHLORIDE
  48. DOSULEPIN HYDROCHLORIDE [Suspect]
     Active Substance: DOTHIEPIN HYDROCHLORIDE
     Route: 048
  49. DOSULEPIN HYDROCHLORIDE [Suspect]
     Active Substance: DOTHIEPIN HYDROCHLORIDE
  50. DOSULEPIN HYDROCHLORIDE [Suspect]
     Active Substance: DOTHIEPIN HYDROCHLORIDE
     Route: 048
  51. DOSULEPIN HYDROCHLORIDE [Suspect]
     Active Substance: DOTHIEPIN HYDROCHLORIDE
  52. DOSULEPIN HYDROCHLORIDE [Suspect]
     Active Substance: DOTHIEPIN HYDROCHLORIDE
  53. DOSULEPIN HYDROCHLORIDE [Suspect]
     Active Substance: DOTHIEPIN HYDROCHLORIDE
  54. DOSULEPIN HYDROCHLORIDE [Suspect]
     Active Substance: DOTHIEPIN HYDROCHLORIDE
  55. VITAMIN B [Suspect]
     Active Substance: VITAMIN B
     Indication: Product used for unknown indication
  56. VITAMIN B [Suspect]
     Active Substance: VITAMIN B
  57. VITAMIN B [Suspect]
     Active Substance: VITAMIN B
  58. TOPIRAMATE [Suspect]
     Active Substance: TOPIRAMATE
     Indication: Product used for unknown indication
  59. TOPIRAMATE [Suspect]
     Active Substance: TOPIRAMATE
  60. TOPIRAMATE [Suspect]
     Active Substance: TOPIRAMATE
  61. TOPIRAMATE [Suspect]
     Active Substance: TOPIRAMATE
  62. TOPIRAMATE [Suspect]
     Active Substance: TOPIRAMATE
  63. TOPIRAMATE [Suspect]
     Active Substance: TOPIRAMATE
  64. TOPIRAMATE [Suspect]
     Active Substance: TOPIRAMATE
  65. TOPIRAMATE [Suspect]
     Active Substance: TOPIRAMATE
  66. TOPIRAMATE [Suspect]
     Active Substance: TOPIRAMATE
  67. TOPIRAMATE [Suspect]
     Active Substance: TOPIRAMATE
  68. TOPIRAMATE [Suspect]
     Active Substance: TOPIRAMATE
     Route: 048
  69. TOPIRAMATE [Suspect]
     Active Substance: TOPIRAMATE
  70. TRAZODONE HYDROCHLORIDE [Suspect]
     Active Substance: TRAZODONE HYDROCHLORIDE
     Indication: Product used for unknown indication
  71. TRAZODONE HYDROCHLORIDE [Suspect]
     Active Substance: TRAZODONE HYDROCHLORIDE
     Indication: Product used for unknown indication
  72. TRAZODONE HYDROCHLORIDE [Suspect]
     Active Substance: TRAZODONE HYDROCHLORIDE
  73. TRAZODONE HYDROCHLORIDE [Suspect]
     Active Substance: TRAZODONE HYDROCHLORIDE
  74. TRAZODONE HYDROCHLORIDE [Suspect]
     Active Substance: TRAZODONE HYDROCHLORIDE
  75. TRAZODONE HYDROCHLORIDE [Suspect]
     Active Substance: TRAZODONE HYDROCHLORIDE
  76. TRAZODONE HYDROCHLORIDE [Suspect]
     Active Substance: TRAZODONE HYDROCHLORIDE
     Dosage: UNK, QD ORAL LIQUID
     Route: 048
  77. TRAZODONE HYDROCHLORIDE [Suspect]
     Active Substance: TRAZODONE HYDROCHLORIDE
  78. TRAZODONE HYDROCHLORIDE [Suspect]
     Active Substance: TRAZODONE HYDROCHLORIDE
  79. TRAZODONE HYDROCHLORIDE [Suspect]
     Active Substance: TRAZODONE HYDROCHLORIDE
  80. TRAZODONE HYDROCHLORIDE [Suspect]
     Active Substance: TRAZODONE HYDROCHLORIDE
  81. TRAZODONE HYDROCHLORIDE [Suspect]
     Active Substance: TRAZODONE HYDROCHLORIDE
     Dosage: UNK, QD ENDOTRACHEOPULMONARY INSTILLATION, POWDER AND SOLVENT FOR SOLUTION))
     Route: 048
  82. TRAZODONE HYDROCHLORIDE [Suspect]
     Active Substance: TRAZODONE HYDROCHLORIDE
     Dosage: UNK, QD ENDOTRACHEOPULMONARY INSTILLATION, POWDER AND SOLVENT FOR SOLUTION))
  83. DICLOFENAC SODIUM [Suspect]
     Active Substance: DICLOFENAC SODIUM
     Indication: Product used for unknown indication
  84. DICLOFENAC SODIUM [Suspect]
     Active Substance: DICLOFENAC SODIUM
  85. THIAMINE HYDROCHLORIDE [Suspect]
     Active Substance: THIAMINE HYDROCHLORIDE
     Indication: Product used for unknown indication
  86. THIAMINE HYDROCHLORIDE [Suspect]
     Active Substance: THIAMINE HYDROCHLORIDE
  87. THIAMINE HYDROCHLORIDE [Suspect]
     Active Substance: THIAMINE HYDROCHLORIDE
  88. THIAMINE HYDROCHLORIDE [Suspect]
     Active Substance: THIAMINE HYDROCHLORIDE
  89. THIAMINE HYDROCHLORIDE [Suspect]
     Active Substance: THIAMINE HYDROCHLORIDE
  90. THIAMINE HYDROCHLORIDE [Suspect]
     Active Substance: THIAMINE HYDROCHLORIDE
  91. THIAMINE HYDROCHLORIDE [Suspect]
     Active Substance: THIAMINE HYDROCHLORIDE
  92. THIAMINE HYDROCHLORIDE [Suspect]
     Active Substance: THIAMINE HYDROCHLORIDE
  93. VALPROATE MAGNESIUM [Suspect]
     Active Substance: VALPROATE MAGNESIUM
     Indication: Product used for unknown indication
  94. VALPROATE MAGNESIUM [Suspect]
     Active Substance: VALPROATE MAGNESIUM
  95. AMITRIPTYLINE [Suspect]
     Active Substance: AMITRIPTYLINE
     Indication: Product used for unknown indication
  96. AMITRIPTYLINE [Suspect]
     Active Substance: AMITRIPTYLINE
     Route: 048
  97. AMITRIPTYLINE [Suspect]
     Active Substance: AMITRIPTYLINE
     Dosage: UNK, QD (EVERY 1 DAYS), FIRST ADMIN DATE 2017 AND LAST ADMIN DATE 2018
     Route: 048
  98. AMITRIPTYLINE [Suspect]
     Active Substance: AMITRIPTYLINE
  99. AMITRIPTYLINE [Suspect]
     Active Substance: AMITRIPTYLINE
     Route: 048
  100. AMITRIPTYLINE [Suspect]
     Active Substance: AMITRIPTYLINE
  101. AMITRIPTYLINE [Suspect]
     Active Substance: AMITRIPTYLINE
     Route: 030
  102. AMITRIPTYLINE [Suspect]
     Active Substance: AMITRIPTYLINE
     Route: 048
  103. AMITRIPTYLINE [Suspect]
     Active Substance: AMITRIPTYLINE
     Route: 048
  104. AMITRIPTYLINE [Suspect]
     Active Substance: AMITRIPTYLINE
     Route: 048
  105. AMITRIPTYLINE [Suspect]
     Active Substance: AMITRIPTYLINE
     Dosage: UNK, QD, FIRST ADMIN DATE 2017 AND LAST ADMIN DATE 2018
     Route: 048
  106. AMITRIPTYLINE [Suspect]
     Active Substance: AMITRIPTYLINE
  107. AMITRIPTYLINE [Suspect]
     Active Substance: AMITRIPTYLINE
  108. AMITRIPTYLINE [Suspect]
     Active Substance: AMITRIPTYLINE
     Route: 048
  109. AMITRIPTYLINE [Suspect]
     Active Substance: AMITRIPTYLINE
     Route: 048
  110. AMITRIPTYLINE [Suspect]
     Active Substance: AMITRIPTYLINE
     Route: 048
  111. PREGABALIN [Suspect]
     Active Substance: PREGABALIN
     Indication: Product used for unknown indication
     Route: 048
  112. PREGABALIN [Suspect]
     Active Substance: PREGABALIN
     Indication: Product used for unknown indication
  113. PREGABALIN [Suspect]
     Active Substance: PREGABALIN
  114. PREGABALIN [Suspect]
     Active Substance: PREGABALIN
  115. PREGABALIN [Suspect]
     Active Substance: PREGABALIN
  116. PREGABALIN [Suspect]
     Active Substance: PREGABALIN
  117. PREGABALIN [Suspect]
     Active Substance: PREGABALIN
     Route: 048
  118. PREGABALIN [Suspect]
     Active Substance: PREGABALIN
  119. PREGABALIN [Suspect]
     Active Substance: PREGABALIN
  120. PREGABALIN [Suspect]
     Active Substance: PREGABALIN
  121. PREGABALIN [Suspect]
     Active Substance: PREGABALIN
  122. PREGABALIN [Suspect]
     Active Substance: PREGABALIN
  123. IBUPROFEN [Suspect]
     Active Substance: IBUPROFEN
     Indication: Product used for unknown indication
  124. IBUPROFEN [Suspect]
     Active Substance: IBUPROFEN
  125. IBUPROFEN [Suspect]
     Active Substance: IBUPROFEN
  126. IBUPROFEN [Suspect]
     Active Substance: IBUPROFEN
  127. IBUPROFEN [Suspect]
     Active Substance: IBUPROFEN
  128. IBUPROFEN [Suspect]
     Active Substance: IBUPROFEN
  129. IBUPROFEN [Suspect]
     Active Substance: IBUPROFEN
     Route: 048
  130. IBUPROFEN [Suspect]
     Active Substance: IBUPROFEN
  131. PYRIDOXINE HYDROCHLORIDE [Suspect]
     Active Substance: PYRIDOXINE HYDROCHLORIDE
     Indication: Product used for unknown indication
  132. PYRIDOXINE HYDROCHLORIDE [Suspect]
     Active Substance: PYRIDOXINE HYDROCHLORIDE
  133. PYRIDOXINE HYDROCHLORIDE [Suspect]
     Active Substance: PYRIDOXINE HYDROCHLORIDE
  134. PYRIDOXINE HYDROCHLORIDE [Suspect]
     Active Substance: PYRIDOXINE HYDROCHLORIDE
  135. PYRIDOXINE HYDROCHLORIDE [Suspect]
     Active Substance: PYRIDOXINE HYDROCHLORIDE
  136. PYRIDOXINE HYDROCHLORIDE [Suspect]
     Active Substance: PYRIDOXINE HYDROCHLORIDE
  137. PYRIDOXINE HYDROCHLORIDE [Suspect]
     Active Substance: PYRIDOXINE HYDROCHLORIDE
  138. PYRIDOXINE HYDROCHLORIDE [Suspect]
     Active Substance: PYRIDOXINE HYDROCHLORIDE
  139. PYRIDOXINE HYDROCHLORIDE [Suspect]
     Active Substance: PYRIDOXINE HYDROCHLORIDE
  140. PYRIDOXINE HYDROCHLORIDE [Suspect]
     Active Substance: PYRIDOXINE HYDROCHLORIDE
  141. VALPROATE SODIUM [Suspect]
     Active Substance: VALPROATE SODIUM
     Indication: Product used for unknown indication
     Dosage: UNK, QD
     Route: 030
  142. VALPROATE SODIUM [Suspect]
     Active Substance: VALPROATE SODIUM
  143. VALPROATE SODIUM [Suspect]
     Active Substance: VALPROATE SODIUM
     Dosage: UNK, QD
     Route: 030
  144. VALPROATE SODIUM [Suspect]
     Active Substance: VALPROATE SODIUM
  145. VALPROATE SODIUM [Suspect]
     Active Substance: VALPROATE SODIUM
  146. VALPROATE SODIUM [Suspect]
     Active Substance: VALPROATE SODIUM
  147. VALPROATE SODIUM [Suspect]
     Active Substance: VALPROATE SODIUM
  148. VALPROATE SODIUM [Suspect]
     Active Substance: VALPROATE SODIUM
     Dosage: UNK, QD (ENDOTRACHEOPULMONARY INSTILLATION, POWDER AND SOLVENT )
  149. VALPROATE SODIUM [Suspect]
     Active Substance: VALPROATE SODIUM
  150. VALPROATE SODIUM [Suspect]
     Active Substance: VALPROATE SODIUM
     Route: 030
  151. SERTRALINE HYDROCHLORIDE [Suspect]
     Active Substance: SERTRALINE HYDROCHLORIDE
     Indication: Product used for unknown indication
  152. SERTRALINE HYDROCHLORIDE [Suspect]
     Active Substance: SERTRALINE HYDROCHLORIDE
  153. SERTRALINE HYDROCHLORIDE [Suspect]
     Active Substance: SERTRALINE HYDROCHLORIDE
  154. SERTRALINE HYDROCHLORIDE [Suspect]
     Active Substance: SERTRALINE HYDROCHLORIDE
  155. SERTRALINE HYDROCHLORIDE [Suspect]
     Active Substance: SERTRALINE HYDROCHLORIDE
  156. SERTRALINE HYDROCHLORIDE [Suspect]
     Active Substance: SERTRALINE HYDROCHLORIDE
  157. SERTRALINE HYDROCHLORIDE [Suspect]
     Active Substance: SERTRALINE HYDROCHLORIDE
  158. SERTRALINE HYDROCHLORIDE [Suspect]
     Active Substance: SERTRALINE HYDROCHLORIDE
  159. SERTRALINE HYDROCHLORIDE [Suspect]
     Active Substance: SERTRALINE HYDROCHLORIDE
  160. SERTRALINE HYDROCHLORIDE [Suspect]
     Active Substance: SERTRALINE HYDROCHLORIDE
  161. SERTRALINE HYDROCHLORIDE [Suspect]
     Active Substance: SERTRALINE HYDROCHLORIDE
  162. SERTRALINE HYDROCHLORIDE [Suspect]
     Active Substance: SERTRALINE HYDROCHLORIDE
  163. DOTHIEPIN HYDROCHLORIDE [Suspect]
     Active Substance: DOTHIEPIN HYDROCHLORIDE
     Indication: Product used for unknown indication
  164. DOTHIEPIN HYDROCHLORIDE [Suspect]
     Active Substance: DOTHIEPIN HYDROCHLORIDE
  165. DOTHIEPIN HYDROCHLORIDE [Suspect]
     Active Substance: DOTHIEPIN HYDROCHLORIDE
  166. DOTHIEPIN HYDROCHLORIDE [Suspect]
     Active Substance: DOTHIEPIN HYDROCHLORIDE
  167. DOTHIEPIN HYDROCHLORIDE [Suspect]
     Active Substance: DOTHIEPIN HYDROCHLORIDE
  168. DOTHIEPIN HYDROCHLORIDE [Suspect]
     Active Substance: DOTHIEPIN HYDROCHLORIDE
  169. DOTHIEPIN HYDROCHLORIDE [Suspect]
     Active Substance: DOTHIEPIN HYDROCHLORIDE
     Route: 048
  170. DOTHIEPIN HYDROCHLORIDE [Suspect]
     Active Substance: DOTHIEPIN HYDROCHLORIDE
  171. DOTHIEPIN HYDROCHLORIDE [Suspect]
     Active Substance: DOTHIEPIN HYDROCHLORIDE
     Route: 048
  172. DOTHIEPIN HYDROCHLORIDE [Suspect]
     Active Substance: DOTHIEPIN HYDROCHLORIDE
     Route: 048
  173. DOTHIEPIN HYDROCHLORIDE [Suspect]
     Active Substance: DOTHIEPIN HYDROCHLORIDE
  174. DOTHIEPIN HYDROCHLORIDE [Suspect]
     Active Substance: DOTHIEPIN HYDROCHLORIDE
     Route: 048
  175. DOTHIEPIN HYDROCHLORIDE [Suspect]
     Active Substance: DOTHIEPIN HYDROCHLORIDE
  176. DOTHIEPIN HYDROCHLORIDE [Suspect]
     Active Substance: DOTHIEPIN HYDROCHLORIDE
  177. DOTHIEPIN HYDROCHLORIDE [Suspect]
     Active Substance: DOTHIEPIN HYDROCHLORIDE
  178. DOTHIEPIN HYDROCHLORIDE [Suspect]
     Active Substance: DOTHIEPIN HYDROCHLORIDE
  179. DOTHIEPIN HYDROCHLORIDE [Suspect]
     Active Substance: DOTHIEPIN HYDROCHLORIDE
  180. DOTHIEPIN HYDROCHLORIDE [Suspect]
     Active Substance: DOTHIEPIN HYDROCHLORIDE
  181. DOTHIEPIN HYDROCHLORIDE [Suspect]
     Active Substance: DOTHIEPIN HYDROCHLORIDE
     Route: 048
  182. DOTHIEPIN HYDROCHLORIDE [Suspect]
     Active Substance: DOTHIEPIN HYDROCHLORIDE
  183. DOTHIEPIN HYDROCHLORIDE [Suspect]
     Active Substance: DOTHIEPIN HYDROCHLORIDE
  184. DOTHIEPIN HYDROCHLORIDE [Suspect]
     Active Substance: DOTHIEPIN HYDROCHLORIDE
  185. DOTHIEPIN HYDROCHLORIDE [Suspect]
     Active Substance: DOTHIEPIN HYDROCHLORIDE
     Route: 048
  186. VALPROIC ACID [Suspect]
     Active Substance: VALPROIC ACID
     Indication: Product used for unknown indication
     Route: 030
  187. VALPROIC ACID [Suspect]
     Active Substance: VALPROIC ACID
  188. VALPROIC ACID [Suspect]
     Active Substance: VALPROIC ACID
  189. VALPROIC ACID [Suspect]
     Active Substance: VALPROIC ACID
     Route: 030
  190. PROTHIADEN [Suspect]
     Active Substance: DOTHIEPIN HYDROCHLORIDE
     Indication: Product used for unknown indication
  191. PROTHIADEN [Suspect]
     Active Substance: DOTHIEPIN HYDROCHLORIDE
  192. PROTHIADEN [Suspect]
     Active Substance: DOTHIEPIN HYDROCHLORIDE
  193. PROTHIADEN [Suspect]
     Active Substance: DOTHIEPIN HYDROCHLORIDE
  194. PROTHIADEN [Suspect]
     Active Substance: DOTHIEPIN HYDROCHLORIDE
  195. PROTHIADEN [Suspect]
     Active Substance: DOTHIEPIN HYDROCHLORIDE
  196. PROTHIADEN [Suspect]
     Active Substance: DOTHIEPIN HYDROCHLORIDE
  197. PROTHIADEN [Suspect]
     Active Substance: DOTHIEPIN HYDROCHLORIDE
  198. PROTHIADEN [Suspect]
     Active Substance: DOTHIEPIN HYDROCHLORIDE
  199. PROTHIADEN [Suspect]
     Active Substance: DOTHIEPIN HYDROCHLORIDE
  200. PROTHIADEN [Suspect]
     Active Substance: DOTHIEPIN HYDROCHLORIDE
  201. PROTHIADEN [Suspect]
     Active Substance: DOTHIEPIN HYDROCHLORIDE
  202. PROTHIADEN [Suspect]
     Active Substance: DOTHIEPIN HYDROCHLORIDE
  203. PROTHIADEN [Suspect]
     Active Substance: DOTHIEPIN HYDROCHLORIDE
  204. PROTHIADEN [Suspect]
     Active Substance: DOTHIEPIN HYDROCHLORIDE
  205. PROTHIADEN [Suspect]
     Active Substance: DOTHIEPIN HYDROCHLORIDE
  206. PROTHIADEN [Suspect]
     Active Substance: DOTHIEPIN HYDROCHLORIDE
  207. PROTHIADEN [Suspect]
     Active Substance: DOTHIEPIN HYDROCHLORIDE
  208. PROTHIADEN [Suspect]
     Active Substance: DOTHIEPIN HYDROCHLORIDE
  209. PROTHIADEN [Suspect]
     Active Substance: DOTHIEPIN HYDROCHLORIDE
  210. PROTHIADEN [Suspect]
     Active Substance: DOTHIEPIN HYDROCHLORIDE
  211. PROTHIADEN [Suspect]
     Active Substance: DOTHIEPIN HYDROCHLORIDE
  212. PROTHIADEN [Suspect]
     Active Substance: DOTHIEPIN HYDROCHLORIDE
  213. PROTHIADEN [Suspect]
     Active Substance: DOTHIEPIN HYDROCHLORIDE
  214. PROTHIADEN [Suspect]
     Active Substance: DOTHIEPIN HYDROCHLORIDE
  215. PROTHIADEN [Suspect]
     Active Substance: DOTHIEPIN HYDROCHLORIDE
  216. PROTHIADEN [Suspect]
     Active Substance: DOTHIEPIN HYDROCHLORIDE
  217. PROTHIADEN [Suspect]
     Active Substance: DOTHIEPIN HYDROCHLORIDE
  218. PROTHIADEN [Suspect]
     Active Substance: DOTHIEPIN HYDROCHLORIDE
  219. ACETAMINOPHEN [Suspect]
     Active Substance: ACETAMINOPHEN
     Indication: Product used for unknown indication
  220. ACETAMINOPHEN [Suspect]
     Active Substance: ACETAMINOPHEN
  221. ACETAMINOPHEN [Suspect]
     Active Substance: ACETAMINOPHEN
  222. ACETAMINOPHEN [Suspect]
     Active Substance: ACETAMINOPHEN
  223. ACETAMINOPHEN [Suspect]
     Active Substance: ACETAMINOPHEN
  224. ACETAMINOPHEN [Suspect]
     Active Substance: ACETAMINOPHEN
  225. ACETAMINOPHEN [Suspect]
     Active Substance: ACETAMINOPHEN
  226. ACETAMINOPHEN [Suspect]
     Active Substance: ACETAMINOPHEN
  227. TRAZODONE HYDROCHLORIDE [Suspect]
     Active Substance: TRAZODONE HYDROCHLORIDE
     Indication: Product used for unknown indication
  228. TRAZODONE HYDROCHLORIDE [Suspect]
     Active Substance: TRAZODONE HYDROCHLORIDE
  229. AMITRIPTYLINE HYDROCHLORIDE [Suspect]
     Active Substance: AMITRIPTYLINE HYDROCHLORIDE
     Indication: Product used for unknown indication
     Dosage: UNK, QD
  230. AMITRIPTYLINE HYDROCHLORIDE [Suspect]
     Active Substance: AMITRIPTYLINE HYDROCHLORIDE
     Route: 048
  231. AMITRIPTYLINE HYDROCHLORIDE [Suspect]
     Active Substance: AMITRIPTYLINE HYDROCHLORIDE
     Dosage: UNK, QD
     Route: 048
  232. AMITRIPTYLINE HYDROCHLORIDE [Suspect]
     Active Substance: AMITRIPTYLINE HYDROCHLORIDE
  233. AMITRIPTYLINE HYDROCHLORIDE [Suspect]
     Active Substance: AMITRIPTYLINE HYDROCHLORIDE
     Route: 030
  234. AMITRIPTYLINE HYDROCHLORIDE [Suspect]
     Active Substance: AMITRIPTYLINE HYDROCHLORIDE
     Route: 030
  235. AMITRIPTYLINE HYDROCHLORIDE [Suspect]
     Active Substance: AMITRIPTYLINE HYDROCHLORIDE
     Route: 030
  236. AMITRIPTYLINE HYDROCHLORIDE [Suspect]
     Active Substance: AMITRIPTYLINE HYDROCHLORIDE
  237. AMITRIPTYLINE HYDROCHLORIDE [Suspect]
     Active Substance: AMITRIPTYLINE HYDROCHLORIDE
     Dosage: UNK, QD
     Route: 048
  238. AMITRIPTYLINE HYDROCHLORIDE [Suspect]
     Active Substance: AMITRIPTYLINE HYDROCHLORIDE
     Route: 048
  239. AMITRIPTYLINE HYDROCHLORIDE [Suspect]
     Active Substance: AMITRIPTYLINE HYDROCHLORIDE
  240. AMITRIPTYLINE HYDROCHLORIDE [Suspect]
     Active Substance: AMITRIPTYLINE HYDROCHLORIDE
     Route: 030
  241. AMITRIPTYLINE HYDROCHLORIDE [Suspect]
     Active Substance: AMITRIPTYLINE HYDROCHLORIDE
  242. AMITRIPTYLINE HYDROCHLORIDE [Suspect]
     Active Substance: AMITRIPTYLINE HYDROCHLORIDE
     Route: 048
  243. AMITRIPTYLINE HYDROCHLORIDE [Suspect]
     Active Substance: AMITRIPTYLINE HYDROCHLORIDE
     Route: 030
  244. AMITRIPTYLINE HYDROCHLORIDE [Suspect]
     Active Substance: AMITRIPTYLINE HYDROCHLORIDE
  245. AMITRIPTYLINE HYDROCHLORIDE [Suspect]
     Active Substance: AMITRIPTYLINE HYDROCHLORIDE
     Route: 030
  246. CYANOCOBALAMIN [Suspect]
     Active Substance: CYANOCOBALAMIN
     Indication: Product used for unknown indication
  247. CYANOCOBALAMIN [Suspect]
     Active Substance: CYANOCOBALAMIN
  248. CYANOCOBALAMIN [Suspect]
     Active Substance: CYANOCOBALAMIN
  249. CYANOCOBALAMIN [Suspect]
     Active Substance: CYANOCOBALAMIN
  250. CYANOCOBALAMIN [Suspect]
     Active Substance: CYANOCOBALAMIN
  251. CYANOCOBALAMIN [Suspect]
     Active Substance: CYANOCOBALAMIN
  252. DICLOFENAC SODIUM [Suspect]
     Active Substance: DICLOFENAC SODIUM
     Indication: Product used for unknown indication
     Route: 030
  253. DICLOFENAC SODIUM [Suspect]
     Active Substance: DICLOFENAC SODIUM
  254. DICLOFENAC SODIUM [Suspect]
     Active Substance: DICLOFENAC SODIUM
  255. DICLOFENAC SODIUM [Suspect]
     Active Substance: DICLOFENAC SODIUM
     Route: 030
  256. IBUPROFEN [Suspect]
     Active Substance: IBUPROFEN
     Indication: Product used for unknown indication
  257. IBUPROFEN [Suspect]
     Active Substance: IBUPROFEN
  258. IBUPROFEN [Suspect]
     Active Substance: IBUPROFEN
  259. IBUPROFEN [Suspect]
     Active Substance: IBUPROFEN
  260. IBUPROFEN [Suspect]
     Active Substance: IBUPROFEN
  261. IBUPROFEN [Suspect]
     Active Substance: IBUPROFEN
  262. IBUPROFEN [Suspect]
     Active Substance: IBUPROFEN
  263. IBUPROFEN [Suspect]
     Active Substance: IBUPROFEN
  264. IBUPROFEN [Suspect]
     Active Substance: IBUPROFEN
  265. IBUPROFEN [Suspect]
     Active Substance: IBUPROFEN
  266. BOTULINUM TOXIN TYPE A [Suspect]
     Active Substance: BOTULINUM TOXIN TYPE A
     Indication: Product used for unknown indication
     Route: 030
  267. BOTULINUM TOXIN TYPE A [Suspect]
     Active Substance: BOTULINUM TOXIN TYPE A
     Indication: Product used for unknown indication
     Route: 030
  268. BOTULINUM TOXIN TYPE A [Suspect]
     Active Substance: BOTULINUM TOXIN TYPE A
     Route: 030
  269. BOTULINUM TOXIN TYPE A [Suspect]
     Active Substance: BOTULINUM TOXIN TYPE A
     Route: 030
  270. BOTULINUM TOXIN TYPE A [Suspect]
     Active Substance: BOTULINUM TOXIN TYPE A
  271. BOTULINUM TOXIN TYPE A [Suspect]
     Active Substance: BOTULINUM TOXIN TYPE A
     Route: 030
  272. BOTULINUM TOXIN TYPE A [Suspect]
     Active Substance: BOTULINUM TOXIN TYPE A
     Dosage: EVERY 1 DAY?PRODUCT START DATE AND STOP DATE WAS REPORTED AS 2018
     Route: 030
  273. BOTULINUM TOXIN TYPE A [Suspect]
     Active Substance: BOTULINUM TOXIN TYPE A
     Route: 030
  274. BOTULINUM TOXIN TYPE A [Suspect]
     Active Substance: BOTULINUM TOXIN TYPE A
     Route: 030
  275. BOTULINUM TOXIN TYPE A [Suspect]
     Active Substance: BOTULINUM TOXIN TYPE A
  276. BOTULINUM TOXIN TYPE A [Suspect]
     Active Substance: BOTULINUM TOXIN TYPE A
     Route: 030
  277. BOTULINUM TOXIN TYPE A [Suspect]
     Active Substance: BOTULINUM TOXIN TYPE A
  278. BOTULINUM TOXIN TYPE A [Suspect]
     Active Substance: BOTULINUM TOXIN TYPE A
     Route: 030
  279. BOTULINUM TOXIN TYPE A [Suspect]
     Active Substance: BOTULINUM TOXIN TYPE A
     Dosage: PRODUCT START DATE AND STOP DATE WAS REPORTED AS 2017
  280. BOTULINUM TOXIN TYPE A [Suspect]
     Active Substance: BOTULINUM TOXIN TYPE A
     Dosage: PRODUCT START DATE AND STOP DATE WAS REPORTED AS 2018
  281. BOTULINUM TOXIN TYPE A [Suspect]
     Active Substance: BOTULINUM TOXIN TYPE A
     Route: 030
  282. BOTULINUM TOXIN TYPE A [Suspect]
     Active Substance: BOTULINUM TOXIN TYPE A
     Route: 030
  283. BOTULINUM TOXIN TYPE A [Suspect]
     Active Substance: BOTULINUM TOXIN TYPE A
     Dosage: 1 MG, QD (SINGLE)
     Route: 030
  284. CYANOCOBALAMIN\PYRIDOXINE HYDROCHLORIDE\THIAMINE [Suspect]
     Active Substance: CYANOCOBALAMIN\PYRIDOXINE HYDROCHLORIDE\THIAMINE
     Indication: Product used for unknown indication
  285. CYANOCOBALAMIN\PYRIDOXINE HYDROCHLORIDE\THIAMINE [Suspect]
     Active Substance: CYANOCOBALAMIN\PYRIDOXINE HYDROCHLORIDE\THIAMINE
  286. DOSULEPIN HYDROCHLORIDE [Suspect]
     Active Substance: DOTHIEPIN HYDROCHLORIDE
     Indication: Product used for unknown indication
     Route: 048
  287. DOSULEPIN HYDROCHLORIDE [Suspect]
     Active Substance: DOTHIEPIN HYDROCHLORIDE
     Route: 048
  288. DOSULEPIN HYDROCHLORIDE [Suspect]
     Active Substance: DOTHIEPIN HYDROCHLORIDE
  289. DOSULEPIN HYDROCHLORIDE [Suspect]
     Active Substance: DOTHIEPIN HYDROCHLORIDE
  290. DOSULEPIN HYDROCHLORIDE [Suspect]
     Active Substance: DOTHIEPIN HYDROCHLORIDE
  291. DOSULEPIN HYDROCHLORIDE [Suspect]
     Active Substance: DOTHIEPIN HYDROCHLORIDE
  292. DOSULEPIN HYDROCHLORIDE [Suspect]
     Active Substance: DOTHIEPIN HYDROCHLORIDE
     Route: 048
  293. DOSULEPIN HYDROCHLORIDE [Suspect]
     Active Substance: DOTHIEPIN HYDROCHLORIDE
     Route: 048
  294. DOSULEPIN HYDROCHLORIDE [Suspect]
     Active Substance: DOTHIEPIN HYDROCHLORIDE
     Route: 048
  295. DOSULEPIN HYDROCHLORIDE [Suspect]
     Active Substance: DOTHIEPIN HYDROCHLORIDE
     Route: 048

REACTIONS (6)
  - Pain [Unknown]
  - Migraine [Unknown]
  - Back pain [Unknown]
  - Neck pain [Unknown]
  - Headache [Unknown]
  - Head discomfort [Unknown]
